FAERS Safety Report 7549399-8 (Version None)
Quarter: 2011Q2

REPORT INFORMATION
  Report Type: 
  Country: None (occurrence: None)
  Receive Date: 20110615
  Receipt Date: 20050818
  Transmission Date: 20111010
  Serious: Yes (Hospitalization)
  Sender: FDA-Public Use
  Company Number: PHHO2005CA13185

PATIENT

DRUGS (1)
  1. CLOZARIL [Suspect]
     Dates: start: 20050601

REACTIONS (1)
  - APPENDICITIS [None]
